FAERS Safety Report 6152345-5 (Version None)
Quarter: 2009Q2

REPORT INFORMATION
  Report Type: 
  Country: None (occurrence: None)
  Receive Date: 20090413
  Receipt Date: 20090402
  Transmission Date: 20091009
  Serious: No
  Sender: FDA-Public Use
  Company Number: US-JNJFOC-20090401234

PATIENT
  Sex: Female
  Weight: 81.65 kg

DRUGS (3)
  1. FENTANYL TRANSDERMAL SYSTEM [Suspect]
     Dosage: FOR 50 UG/HR PATCHES
     Route: 062
  2. FENTANYL TRANSDERMAL SYSTEM [Suspect]
     Indication: FIBROMYALGIA
     Route: 062
  3. UNSPECIFIED MEDICATIONS [Concomitant]
     Route: 065

REACTIONS (1)
  - WRONG TECHNIQUE IN DRUG USAGE PROCESS [None]
